FAERS Safety Report 9438345 (Version 1)
Quarter: 2013Q3

REPORT INFORMATION
  Report Type: Spontaneous
  Country: US (occurrence: US)
  Receive Date: 20130802
  Receipt Date: 20130802
  Transmission Date: 20140515
  Serious: No
  Sender: FDA-Public Use
  Company Number: US-BRISTOL-MYERS SQUIBB COMPANY-17032178

PATIENT
  Age: 89 Year
  Sex: Male

DRUGS (2)
  1. WARFARIN SODIUM [Suspect]
     Dosage: 1 DF:6MG/DAY?FROM 14-SEP-2012 1 DF:10MG/DAY.
  2. ENOXAPARIN SODIUM [Suspect]
     Indication: PROPHYLAXIS
     Dosage: PARENTAL,INJ,SOLUTION:120MG/ML
     Dates: start: 20120909

REACTIONS (2)
  - Fatigue [Unknown]
  - International normalised ratio decreased [Unknown]
